FAERS Safety Report 25050110 (Version 1)
Quarter: 2025Q1

REPORT INFORMATION
  Report Type: Spontaneous
  Country: IN (occurrence: IN)
  Receive Date: 20250307
  Receipt Date: 20250307
  Transmission Date: 20250408
  Serious: Yes (Death, Hospitalization, Other)
  Sender: NEXUS PHARMACEUTICALS
  Company Number: IN-Nexus Pharma-000368

PATIENT
  Age: 37 Week
  Sex: Female
  Weight: 2.87 kg

DRUGS (2)
  1. COLISTIMETHATE SODIUM [Suspect]
     Active Substance: COLISTIMETHATE SODIUM
     Indication: Antibiotic therapy
  2. UNSPECIFIED INGREDIENT [Suspect]
     Active Substance: UNSPECIFIED INGREDIENT
     Indication: Antibiotic therapy

REACTIONS (2)
  - Drug resistance [Fatal]
  - Multiple organ dysfunction syndrome [Fatal]
